FAERS Safety Report 17252460 (Version 1)
Quarter: 2020Q1

REPORT INFORMATION
  Report Type: Spontaneous
  Country: US (occurrence: US)
  Receive Date: 20200109
  Receipt Date: 20200109
  Transmission Date: 20200409
  Serious: No
  Sender: FDA-Public Use
  Company Number: US-PFIZER INC-2020008057

PATIENT
  Age: 61 Year
  Sex: Female
  Weight: 63.5 kg

DRUGS (3)
  1. IBRANCE [Suspect]
     Active Substance: PALBOCICLIB
     Indication: BREAST CANCER METASTATIC
     Dosage: 75 MG, CYCLIC (SHE IS ON FOR THREE WEEKS AND OFF FOR ONE WEEK)
     Route: 048
     Dates: start: 201906
  2. IBRANCE [Suspect]
     Active Substance: PALBOCICLIB
     Dosage: 75 MG, CYCLIC (ON FOR THREE WEEKS AND OFF FOR ONE WEEK)
     Route: 048
     Dates: start: 201912
  3. IBRANCE [Suspect]
     Active Substance: PALBOCICLIB
     Dosage: 100 MG,CYCIIC(ON FOR THREE WEEKS AND OFF FOR ONE WEEK)
     Route: 048
     Dates: start: 2019, end: 201912

REACTIONS (1)
  - Neutrophil count decreased [Unknown]

NARRATIVE: CASE EVENT DATE: 2019
